FAERS Safety Report 18407703 (Version 1)
Quarter: 2020Q4

REPORT INFORMATION
  Report Type: Spontaneous
  Country: IT (occurrence: IT)
  Receive Date: 20201020
  Receipt Date: 20201020
  Transmission Date: 20210114
  Serious: Yes (Other)
  Sender: FDA-Public Use
  Company Number: IT-MYLANLABS-2020M1088059

PATIENT
  Age: 49 Year
  Sex: Female

DRUGS (2)
  1. KLACID [Suspect]
     Active Substance: CLARITHROMYCIN
     Indication: DENTAL OPERATION
     Dosage: 500 MILLIGRAM, TOTAL
     Route: 048
     Dates: start: 20200925, end: 20200925
  2. CONTRAMAL [Suspect]
     Active Substance: TRAMADOL HYDROCHLORIDE
     Indication: TOOTHACHE
     Dosage: 1 DOSAGE FORM, TOTAL
     Route: 048
     Dates: start: 20200925, end: 20200925

REACTIONS (2)
  - Hyperhidrosis [Recovering/Resolving]
  - Vomiting [Recovering/Resolving]

NARRATIVE: CASE EVENT DATE: 20200925
